FAERS Safety Report 7825378-8 (Version None)
Quarter: 2011Q4

REPORT INFORMATION
  Report Type: 
  Country: None (occurrence: None)
  Receive Date: 20111019
  Receipt Date: 20110915
  Transmission Date: 20120403
  Serious: Yes (Other)
  Sender: FDA-Public Use
  Company Number: PHHY2011BR86892

PATIENT
  Age: 23 Year
  Sex: Male
  Weight: 122.5 kg

DRUGS (3)
  1. HYDROCHLOROTHIAZIDE [Concomitant]
     Dosage: 25 MG, QD
  2. ASPIRIN [Concomitant]
     Dosage: 100 MG, QD
  3. AMLODIPINE BESYLATE [Suspect]
     Dosage: 5 MG, QD
     Route: 048

REACTIONS (2)
  - DIASTOLIC DYSFUNCTION [None]
  - HYPERTENSION [None]
